FAERS Safety Report 5256930-4 (Version None)
Quarter: 2007Q1

REPORT INFORMATION
  Report Type: 
  Country: None (occurrence: None)
  Receive Date: 20070305
  Receipt Date: 20070305
  Transmission Date: 20070707
  Serious: Yes (Other)
  Sender: FDA-Public Use
  Company Number: None

PATIENT
  Sex: Male
  Weight: 94.3482 kg

DRUGS (1)
  1. VARENICLINE    1MG    CHANTIX [Suspect]
     Indication: SMOKING CESSATION THERAPY
     Dosage: 2  DAILY  PO
     Route: 048
     Dates: start: 20070210, end: 20070302

REACTIONS (2)
  - DEPRESSION [None]
  - PHARMACEUTICAL PRODUCT COMPLAINT [None]
